FAERS Safety Report 17434787 (Version 1)
Quarter: 2020Q1

REPORT INFORMATION
  Report Type: Spontaneous
  Country: FR (occurrence: FR)
  Receive Date: 20200219
  Receipt Date: 20200219
  Transmission Date: 20200409
  Serious: Yes (Hospitalization)
  Sender: FDA-Public Use
  Company Number: NVSC2020FR040911

PATIENT
  Age: 70 Year
  Sex: Female
  Weight: 88 kg

DRUGS (2)
  1. CLOMIPRAMINE HYDROCHLORIDE. [Suspect]
     Active Substance: CLOMIPRAMINE HYDROCHLORIDE
     Indication: BIPOLAR I DISORDER
     Dosage: 75 MG, QD
     Route: 048
  2. TOFRANIL [Suspect]
     Active Substance: IMIPRAMINE HYDROCHLORIDE
     Indication: BIPOLAR I DISORDER
     Dosage: 1 DF, QD
     Route: 048
     Dates: end: 20190726

REACTIONS (4)
  - Motor dysfunction [Not Recovered/Not Resolved]
  - Paraesthesia [Not Recovered/Not Resolved]
  - Dysgraphia [Not Recovered/Not Resolved]
  - Dyspnoea [Not Recovered/Not Resolved]

NARRATIVE: CASE EVENT DATE: 20190724
